FAERS Safety Report 4287401-X (Version None)
Quarter: 2004Q1

REPORT INFORMATION
  Report Type: 
  Country: None (occurrence: None)
  Receive Date: 20040209
  Receipt Date: 20030620
  Transmission Date: 20041129
  Serious: No
  Sender: FDA-Public Use
  Company Number: US-GLAXOSMITHKLINE-A0413331A

PATIENT
  Age: 57 Year
  Sex: Male

DRUGS (3)
  1. PAXIL CR [Suspect]
     Indication: DEPRESSION
     Dosage: 50MG PER DAY
     Dates: start: 20020601
  2. MULTIVITAMIN [Concomitant]
     Route: 048
  3. SAW PALMETTO [Concomitant]
     Route: 048

REACTIONS (2)
  - FATIGUE [None]
  - PARAESTHESIA [None]
